FAERS Safety Report 5308952-2 (Version None)
Quarter: 2007Q2

REPORT INFORMATION
  Report Type: 
  Country: None (occurrence: None)
  Receive Date: 20070420
  Receipt Date: 20070413
  Transmission Date: 20071010
  Serious: Yes (Hospitalization)
  Sender: FDA-Public Use
  Company Number: 6031784

PATIENT
  Age: 74 Year
  Sex: Male

DRUGS (13)
  1. CARDENSIEL 5 MG(BISOPROLOL FUMARATE) [Suspect]
     Indication: CARDIOMYOPATHY
     Dosage: 5 MG (5 MG, 1 D) ORAL
     Route: 048
  2. ALDACTONE [Suspect]
     Indication: CARDIOMYOPATHY
     Dosage: 1 DOSAGE FORMS (1 DOSAGE FORMS, 1 D) ORAL
     Route: 048
     Dates: end: 20070303
  3. KENZEN (CANDESARTAN CILEXETIL) [Suspect]
     Indication: CARDIOMYOPATHY
     Dosage: 24 MG (24 MG, 1 D) ORAL
     Route: 048
     Dates: end: 20070303
  4. LANTUS [Suspect]
     Indication: DIABETES MELLITUS
     Dosage: 1 DOSAGE FORMS (1 DOSAGE FORMS, 1 D) SUBCUTANEOUS
     Route: 058
  5. PROXALYOC (PIROXICAM) [Suspect]
     Indication: DRUG USE FOR UNKNOWN INDICATION
     Dosage: 1 DOSAGE FORMS (1 DOSAGE FORMS, 1 D) ORAL
     Route: 048
     Dates: end: 20070302
  6. LASIX [Suspect]
     Indication: CARDIOMYOPATHY
     Dosage: 40 MG (40 MG, 1 D) ORAL
     Route: 048
  7. GEMFIBROZIL [Concomitant]
  8. METFORMIN HCL [Concomitant]
  9. PREVISCAN (FLUINDIONE) [Concomitant]
  10. AMIODARONE HCL [Concomitant]
  11. ACETAMINOPHEN [Concomitant]
  12. DITROPAN [Concomitant]
  13. NOVORAPID (INSULIN ASPART) [Concomitant]

REACTIONS (7)
  - ATRIOVENTRICULAR BLOCK FIRST DEGREE [None]
  - BUNDLE BRANCH BLOCK LEFT [None]
  - DRUG INTERACTION [None]
  - HEART RATE DECREASED [None]
  - HYPERKALAEMIA [None]
  - OVERDOSE [None]
  - RENAL FAILURE [None]
